FAERS Safety Report 12589479 (Version 1)
Quarter: 2016Q3

REPORT INFORMATION
  Report Type: Spontaneous
  Country: JP (occurrence: JP)
  Receive Date: 20160725
  Receipt Date: 20160725
  Transmission Date: 20161109
  Serious: Yes (Other)
  Sender: FDA-Public Use
  Company Number: JP-BAYER-2016-138470

PATIENT
  Age: 25 Year
  Sex: Female

DRUGS (1)
  1. ACETYLSALICYLIC ACID({=100 MG) [Suspect]
     Active Substance: ASPIRIN
     Dosage: UNK
     Route: 048

REACTIONS (7)
  - Intrapartum haemorrhage [None]
  - Tachycardia [None]
  - Cardiac index decreased [Recovered/Resolved]
  - Maternal exposure during pregnancy [Recovered/Resolved]
  - Hypoxia [None]
  - Premature labour [Recovered/Resolved]
  - Pelvic venous thrombosis [None]
